FAERS Safety Report 5845539-7 (Version None)
Quarter: 2008Q3

REPORT INFORMATION
  Report Type: 
  Country: None (occurrence: None)
  Receive Date: 20080814
  Receipt Date: 20080806
  Transmission Date: 20090109
  Serious: Yes (Other)
  Sender: FDA-Public Use
  Company Number: IN-ASTRAZENECA-2008AC02134

PATIENT
  Age: 32 Year
  Sex: Female
  Weight: 55 kg

DRUGS (7)
  1. BUPIVACAINE [Suspect]
     Route: 038
  2. BUPIVACAINE [Suspect]
     Route: 038
  3. BUPRENORPHINE HCL [Concomitant]
     Route: 038
  4. BUPRENORPHINE HCL [Concomitant]
     Route: 038
  5. OXYGEN [Concomitant]
  6. ISOFLURANE [Concomitant]
  7. ANTITUBERCULAR TREATMENT [Concomitant]

REACTIONS (1)
  - NEUROLOGICAL SYMPTOM [None]
